FAERS Safety Report 25771576 (Version 1)
Quarter: 2025Q3

REPORT INFORMATION
  Report Type: Spontaneous
  Country: US (occurrence: US)
  Receive Date: 20250908
  Receipt Date: 20250908
  Transmission Date: 20251020
  Serious: No
  Sender: DOMPE FARMACEUTICI
  Company Number: US-FARMAPROD-202504-1449

PATIENT
  Sex: Female
  Weight: 73.94 kg

DRUGS (8)
  1. OXERVATE [Suspect]
     Active Substance: CENEGERMIN-BKBJ
     Indication: Neurotrophic keratopathy
     Route: 047
     Dates: start: 20250421
  2. SYSTANE (HYPROMELLOSE 2910 (4000 MPA.S)) [Concomitant]
     Active Substance: HYPROMELLOSE 2910 (4000 MPA.S)
  3. SYSTANE COMPLETE [Concomitant]
     Active Substance: PROPYLENE GLYCOL
  4. ZYRTEC [Concomitant]
     Active Substance: CETIRIZINE HYDROCHLORIDE
  5. INCASSIA [Concomitant]
     Active Substance: NORETHINDRONE
  6. MONTELUKAST SODIUM [Concomitant]
     Active Substance: MONTELUKAST SODIUM
  7. FLOVENT [Concomitant]
     Active Substance: FLUTICASONE PROPIONATE
  8. BUDESONIDE NASAL RINSE [Concomitant]

REACTIONS (1)
  - Eye pain [Unknown]
